FAERS Safety Report 21471800 (Version 3)
Quarter: 2023Q2

REPORT INFORMATION
  Report Type: Report from Study
  Country: CA (occurrence: CA)
  Receive Date: 20221018
  Receipt Date: 20230407
  Transmission Date: 20230722
  Serious: No
  Sender: FDA-Public Use
  Company Number: CA-ASTELLAS-2022US016415

PATIENT
  Age: 70 Year
  Sex: Male

DRUGS (6)
  1. LEUPROLIDE ACETATE [Suspect]
     Active Substance: LEUPROLIDE ACETATE
     Indication: Prostate cancer
     Dosage: 22.5 MG, EVERY 3 MONTHS
     Route: 058
     Dates: start: 20211022
  2. LEUPROLIDE ACETATE [Suspect]
     Active Substance: LEUPROLIDE ACETATE
     Indication: Prostate cancer
     Dosage: 45 MG, EVERY 6 MONTHS
     Route: 058
     Dates: start: 20220423
  3. LEUPROLIDE ACETATE [Suspect]
     Active Substance: LEUPROLIDE ACETATE
     Dosage: 45 MG, EVERY 6 MONTHS
     Route: 058
     Dates: start: 20221008
  4. LEUPROLIDE ACETATE [Suspect]
     Active Substance: LEUPROLIDE ACETATE
     Dosage: 45 MG, EVERY 6 MONTHS
     Route: 058
     Dates: start: 20230325
  5. XTANDI [Suspect]
     Active Substance: ENZALUTAMIDE
     Indication: Product used for unknown indication
     Dosage: UNK UNK, UNKNOWN FREQ.
     Route: 065
  6. XTANDI [Suspect]
     Active Substance: ENZALUTAMIDE
     Dosage: UNK UNK, UNKNOWN FREQ. (CUT DOWN HALF);
     Route: 065

REACTIONS (5)
  - Weight increased [Unknown]
  - Hot flush [Unknown]
  - Depression [Unknown]
  - Gynaecomastia [Unknown]
  - Muscle atrophy [Unknown]

NARRATIVE: CASE EVENT DATE: 20211201
